FAERS Safety Report 20697260 (Version 1)
Quarter: 2022Q2

REPORT INFORMATION
  Report Type: Spontaneous
  Country: US (occurrence: None)
  Receive Date: 20220408
  Receipt Date: 20220408
  Transmission Date: 20220721
  Serious: Yes (Hospitalization)
  Sender: FDA-Public Use
  Company Number: None

PATIENT
  Age: 69 Year

DRUGS (14)
  1. CAPECITABINE [Suspect]
     Active Substance: CAPECITABINE
  2. CAPECITABINE [Suspect]
     Active Substance: CAPECITABINE
  3. COLCHICINE [Concomitant]
     Active Substance: COLCHICINE
  4. FERROUS SULFATE [Concomitant]
     Active Substance: FERROUS SULFATE
  5. LANSOPRAZOLE [Concomitant]
     Active Substance: LANSOPRAZOLE
  6. LIDOCAINE [Concomitant]
     Active Substance: LIDOCAINE
  7. LISINOPIRL-HYDROCHLOROTHIAZIDE [Concomitant]
  8. LOPERAMIDE [Concomitant]
     Active Substance: LOPERAMIDE
  9. MIRALAX [Concomitant]
     Active Substance: POLYETHYLENE GLYCOL 3350
  10. ONDANSETRON [Concomitant]
     Active Substance: ONDANSETRON
  11. PROCHLORPERAZINE [Concomitant]
     Active Substance: PROCHLORPERAZINE
  12. REMERON [Concomitant]
     Active Substance: MIRTAZAPINE
  13. TAMSULOSIN [Concomitant]
     Active Substance: TAMSULOSIN
  14. ZOFRAN [Concomitant]
     Active Substance: ONDANSETRON HYDROCHLORIDE

REACTIONS (2)
  - Sepsis [None]
  - Liver abscess [None]

NARRATIVE: CASE EVENT DATE: 20220318
